FAERS Safety Report 6014329-7 (Version None)
Quarter: 2008Q4

REPORT INFORMATION
  Report Type: 
  Country: None (occurrence: None)
  Receive Date: 20081219
  Receipt Date: 20080417
  Transmission Date: 20090506
  Serious: No
  Sender: FDA-Public Use
  Company Number: A0723434A

PATIENT
  Age: 76 Year
  Sex: Male

DRUGS (11)
  1. AVODART [Suspect]
     Indication: BENIGN PROSTATIC HYPERPLASIA
     Dosage: .5MG PER DAY
     Route: 048
     Dates: start: 20071108
  2. DYRENIUM [Concomitant]
  3. SYNTHROID [Concomitant]
  4. NEXIUM [Concomitant]
  5. METFORMIN HCL [Concomitant]
  6. CARDIZEM [Concomitant]
  7. PRAVASTATIN [Concomitant]
  8. SINGULAIR [Concomitant]
  9. UROXATRAL [Concomitant]
  10. FLOVENT [Concomitant]
  11. CLOBETASOL PROPIONATE [Concomitant]

REACTIONS (5)
  - ERECTILE DYSFUNCTION [None]
  - NERVOUSNESS [None]
  - PENILE SIZE REDUCED [None]
  - POLLAKIURIA [None]
  - TREMOR [None]
